FAERS Safety Report 9343385 (Version 9)
Quarter: 2023Q4

REPORT INFORMATION
  Report Type: Other
  Country: CA (occurrence: CA)
  Receive Date: 20130612
  Receipt Date: 20231117
  Transmission Date: 20240110
  Serious: Yes (Hospitalization, Other)
  Sender: FDA-Public Use
  Company Number: CA-ROCHE-1235413

PATIENT
  Age: 44 Year
  Sex: Female

DRUGS (6)
  1. XOLAIR [Suspect]
     Active Substance: OMALIZUMAB
     Indication: Asthma
     Dosage: SOLUTION FOR INJECTION IN PRE-FILLED SYRINGE
     Route: 058
     Dates: start: 20051112
  2. XOLAIR [Suspect]
     Active Substance: OMALIZUMAB
     Route: 058
  3. XOLAIR [Suspect]
     Active Substance: OMALIZUMAB
     Route: 058
     Dates: start: 20181122
  4. XOLAIR [Suspect]
     Active Substance: OMALIZUMAB
     Dosage: SOLUTION FOR INJECTION IN PRE-FILLED SYRINGE
     Route: 058
     Dates: start: 20051112
  5. SYMBICORT [Concomitant]
     Active Substance: BUDESONIDE\FORMOTEROL FUMARATE DIHYDRATE
     Indication: Product used for unknown indication
     Dosage: 200/6 MCG, 2 INH PER DAY
  6. NASACORT [Concomitant]
     Active Substance: TRIAMCINOLONE ACETONIDE
     Indication: Product used for unknown indication
     Dosage: 55 MCG, 2 INTRANASAL 2 TIMES A DAY

REACTIONS (5)
  - Cardiac disorder [Recovered/Resolved]
  - Pneumonia [Unknown]
  - Gastrointestinal infection [Unknown]
  - Gastritis [Unknown]
  - Sinusitis [Unknown]

NARRATIVE: CASE EVENT DATE: 20130518
